FAERS Safety Report 25470302 (Version 1)
Quarter: 2025Q2

REPORT INFORMATION
  Report Type: Report from Study
  Country: US (occurrence: US)
  Receive Date: 20250623
  Receipt Date: 20250623
  Transmission Date: 20250717
  Serious: Yes (Hospitalization)
  Sender: ABBVIE
  Company Number: US-ABBVIE-6244907

PATIENT
  Age: 25 Year
  Sex: Female
  Weight: 49.895 kg

DRUGS (2)
  1. SKYRIZI [Suspect]
     Active Substance: RISANKIZUMAB-RZAA
     Indication: Crohn^s disease
     Route: 058
     Dates: start: 202409
  2. SKYRIZI [Suspect]
     Active Substance: RISANKIZUMAB-RZAA
     Route: 058
     Dates: end: 20250606

REACTIONS (8)
  - Proctalgia [Recovering/Resolving]
  - Abdominal pain upper [Recovering/Resolving]
  - Crohn^s disease [Recovered/Resolved]
  - Proctitis [Recovering/Resolving]
  - Gastritis [Not Recovered/Not Resolved]
  - Decreased appetite [Recovering/Resolving]
  - Feeding disorder [Recovering/Resolving]
  - Fistula [Not Recovered/Not Resolved]

NARRATIVE: CASE EVENT DATE: 20250201
